FAERS Safety Report 6994527-6 (Version None)
Quarter: 2010Q3

REPORT INFORMATION
  Report Type: 
  Country: None (occurrence: None)
  Receive Date: 20100917
  Receipt Date: 20100907
  Transmission Date: 20110219
  Serious: Yes (Other)
  Sender: FDA-Public Use
  Company Number: US-JNJCH-2010019324

PATIENT
  Sex: Female
  Weight: 78.9 kg

DRUGS (7)
  1. BENADRYL [Suspect]
     Indication: ARTHROPOD BITE
     Dosage: TEXT:1 TABLET
     Route: 048
     Dates: start: 20100818, end: 20100821
  2. ALLEGRA [Suspect]
     Indication: HYPERSENSITIVITY
     Dosage: TEXT:UNKNOWN
     Route: 065
  3. FLECAINIDE ACETATE [Concomitant]
     Indication: ARRHYTHMIA
     Dosage: TEXT:UNKNOWN
     Route: 065
  4. ATENOLOL [Concomitant]
     Indication: HYPERTENSION
     Dosage: TEXT:UNKNOWN
     Route: 065
  5. XANAX [Concomitant]
     Indication: ANXIETY
     Dosage: TEXT:UNKNOWN
     Route: 065
  6. MUCINEX [Concomitant]
     Indication: HYPERSENSITIVITY
     Dosage: TEXT:UNKNOWN
     Route: 065
  7. LESCOL [Concomitant]
     Indication: PRODUCT USED FOR UNKNOWN INDICATION
     Dosage: TEXT:UNKNOWN
     Route: 065

REACTIONS (4)
  - HYPERSENSITIVITY [None]
  - IMPAIRED WORK ABILITY [None]
  - OFF LABEL USE [None]
  - PRODUCT QUALITY ISSUE [None]
